FAERS Safety Report 25057326 (Version 4)
Quarter: 2025Q3

REPORT INFORMATION
  Report Type: Spontaneous
  Country: US (occurrence: US)
  Receive Date: 20250310
  Receipt Date: 20250818
  Transmission Date: 20251021
  Serious: No
  Sender: CSL BEHRING
  Company Number: US-BEH-2025197800

PATIENT
  Sex: Female

DRUGS (19)
  1. HIZENTRA [Suspect]
     Active Substance: HUMAN IMMUNOGLOBULIN G
     Indication: Polyarthritis
     Dosage: 14 G, QOW(4GM 20ML)
     Route: 058
  2. HIZENTRA [Suspect]
     Active Substance: HUMAN IMMUNOGLOBULIN G
     Indication: Polyarthritis
     Dosage: 14 G, QOW(4GM 20ML)
     Route: 058
  3. HIZENTRA [Suspect]
     Active Substance: HUMAN IMMUNOGLOBULIN G
     Dosage: 14 G, QOW(4GM 20ML)
     Route: 058
  4. HIZENTRA [Suspect]
     Active Substance: HUMAN IMMUNOGLOBULIN G
     Dosage: 14 G, QOW(4GM 20ML)
     Route: 058
  5. HIZENTRA [Suspect]
     Active Substance: HUMAN IMMUNOGLOBULIN G
     Dosage: 14 UNK
     Route: 058
  6. HIZENTRA [Suspect]
     Active Substance: HUMAN IMMUNOGLOBULIN G
     Dosage: 14 UNK
     Route: 058
  7. OXYCODONE [Concomitant]
     Active Substance: OXYCODONE
  8. ASPIRIN [Concomitant]
     Active Substance: ASPIRIN
  9. BIOTIN [Concomitant]
     Active Substance: BIOTIN
  10. CALCIUM [Concomitant]
     Active Substance: CALCIUM
  11. CEPHALEXIN [Concomitant]
     Active Substance: CEPHALEXIN
  12. CLONAZEPAM [Concomitant]
     Active Substance: CLONAZEPAM
  13. LAMOTRIGINE [Concomitant]
     Active Substance: LAMOTRIGINE
  14. METHENAMINE [Concomitant]
     Active Substance: METHENAMINE
  15. OMEPRAZOLE [Concomitant]
     Active Substance: OMEPRAZOLE
  16. PREDNISONE [Concomitant]
     Active Substance: PREDNISONE
  17. XANAX [Concomitant]
     Active Substance: ALPRAZOLAM
  18. VITAMIN D NOS [Concomitant]
     Active Substance: CHOLECALCIFEROL\ERGOCALCIFEROL
  19. VITAMINS [Concomitant]
     Active Substance: VITAMINS

REACTIONS (7)
  - Somnolence [Unknown]
  - Fatigue [Not Recovered/Not Resolved]
  - Weight loss poor [Unknown]
  - Off label use [Unknown]
  - Fatigue [Unknown]
  - Fear [Unknown]
  - Intentional dose omission [Unknown]
